FAERS Safety Report 7153584-7 (Version None)
Quarter: 2010Q4

REPORT INFORMATION
  Report Type: 
  Country: None (occurrence: None)
  Receive Date: 20101213
  Receipt Date: 20101206
  Transmission Date: 20110411
  Serious: Yes (Hospitalization)
  Sender: FDA-Public Use
  Company Number: US-BRISTOL-MYERS SQUIBB COMPANY-15425820

PATIENT

DRUGS (1)
  1. IXEMPRA KIT [Suspect]
     Dosage: INFUSION
     Route: 042

REACTIONS (1)
  - CARDIAC FAILURE CONGESTIVE [None]
